FAERS Safety Report 6262440-8 (Version None)
Quarter: 2009Q3

REPORT INFORMATION
  Report Type: 
  Country: None (occurrence: None)
  Receive Date: 20090709
  Receipt Date: 20090701
  Transmission Date: 20100115
  Serious: Yes (Other)
  Sender: FDA-Public Use
  Company Number: US-ASTRAZENECA-2009UW18545

PATIENT
  Age: 64 Year
  Sex: Female
  Weight: 52.2 kg

DRUGS (10)
  1. SYMBICORT [Suspect]
     Indication: CHRONIC OBSTRUCTIVE PULMONARY DISEASE
     Dosage: 160/4.5 ONE PUFF DAILY
     Route: 055
  2. NEXIUM [Suspect]
     Indication: GASTROOESOPHAGEAL REFLUX DISEASE
     Route: 048
     Dates: start: 20010101
  3. CLARINEX [Concomitant]
     Route: 065
  4. LIPITOR [Concomitant]
     Route: 065
  5. SINGULAIR [Concomitant]
     Route: 065
  6. VALIUM [Concomitant]
     Route: 065
  7. NORVASC [Concomitant]
     Route: 065
  8. PLAVIX [Concomitant]
     Route: 065
  9. SEREVENT [Concomitant]
     Route: 065
  10. VITAMIN SUPLEMENT [Concomitant]

REACTIONS (11)
  - BREAST CANCER [None]
  - CATARACT [None]
  - COLITIS [None]
  - CROHN'S DISEASE [None]
  - DIARRHOEA [None]
  - DYSPNOEA [None]
  - FATIGUE [None]
  - HERPES VIRUS INFECTION [None]
  - PNEUMONIA [None]
  - PRECANCEROUS SKIN LESION [None]
  - WHEEZING [None]
